FAERS Safety Report 18560321 (Version 1)
Quarter: 2020Q4

REPORT INFORMATION
  Report Type: Spontaneous
  Country: US (occurrence: US)
  Receive Date: 20201130
  Receipt Date: 20201130
  Transmission Date: 20210114
  Serious: Yes (Other)
  Sender: FDA-Public Use
  Company Number: US-PERRIGO-20US016782

PATIENT
  Age: 71 Year
  Sex: Male
  Weight: 86.17 kg

DRUGS (13)
  1. RANITIDINE HYDROCHLORIDE. [Suspect]
     Active Substance: RANITIDINE HYDROCHLORIDE
     Dosage: 150 MG, 1 TO 2 TIMES MONTHLY
     Route: 048
     Dates: start: 201905, end: 202004
  2. BENADRYL [Concomitant]
     Active Substance: DIPHENHYDRAMINE HYDROCHLORIDE
     Indication: HEADACHE
  3. BENADRYL [Concomitant]
     Active Substance: DIPHENHYDRAMINE HYDROCHLORIDE
     Indication: MOOD ALTERED
  4. GAS-X [Concomitant]
     Active Substance: DIMETHICONE
     Indication: HEADACHE
  5. VITAMIN E                          /00110501/ [Concomitant]
     Active Substance: TOCOPHEROL
     Indication: SUPPLEMENTATION THERAPY
     Dosage: UNK
     Route: 065
     Dates: start: 2005
  6. BENADRYL [Concomitant]
     Active Substance: DIPHENHYDRAMINE HYDROCHLORIDE
     Indication: GASTROINTESTINAL PAIN
  7. GAS-X [Concomitant]
     Active Substance: DIMETHICONE
     Indication: DIARRHOEA
     Dosage: UNK
     Route: 065
     Dates: start: 2017
  8. GAS-X [Concomitant]
     Active Substance: DIMETHICONE
     Indication: GASTROINTESTINAL PAIN
  9. GAS-X [Concomitant]
     Active Substance: DIMETHICONE
     Indication: MOOD ALTERED
  10. RANITIDINE HYDROCHLORIDE. [Suspect]
     Active Substance: RANITIDINE HYDROCHLORIDE
     Indication: DYSPEPSIA
     Dosage: 150 MG, 3 TO 4 TIMES WEEKLY
     Route: 048
     Dates: start: 201705, end: 2019
  11. BENADRYL [Concomitant]
     Active Substance: DIPHENHYDRAMINE HYDROCHLORIDE
     Indication: DYSPEPSIA
     Dosage: UNK
     Route: 065
     Dates: start: 2017
  12. FISH OIL [Concomitant]
     Active Substance: FISH OIL
     Indication: SUPPLEMENTATION THERAPY
     Dosage: UNK
     Route: 065
     Dates: start: 2005
  13. BENADRYL [Concomitant]
     Active Substance: DIPHENHYDRAMINE HYDROCHLORIDE
     Indication: DIARRHOEA

REACTIONS (4)
  - Urinary hesitation [Recovered/Resolved]
  - Bone pain [Recovering/Resolving]
  - Weight decreased [Recovered/Resolved]
  - Prostate cancer metastatic [Recovering/Resolving]

NARRATIVE: CASE EVENT DATE: 202001
